FAERS Safety Report 7512627-9 (Version None)
Quarter: 2011Q2

REPORT INFORMATION
  Report Type: 
  Country: None (occurrence: None)
  Receive Date: 20110531
  Receipt Date: 20110524
  Transmission Date: 20111010
  Serious: Yes (Hospitalization)
  Sender: FDA-Public Use
  Company Number: US-GILEAD-2011-0039165

PATIENT
  Sex: Female

DRUGS (7)
  1. LETAIRIS [Suspect]
     Indication: MITRAL VALVE DISEASE
  2. LETAIRIS [Suspect]
     Indication: HEART VALVE REPLACEMENT
  3. REMODULIN [Concomitant]
  4. LETAIRIS [Suspect]
     Indication: TRICUSPID VALVE REPAIR
  5. LETAIRIS [Suspect]
     Indication: PULMONARY HYPERTENSION
     Route: 048
     Dates: start: 20090701
  6. ADCIRCA [Concomitant]
  7. LETAIRIS [Suspect]
     Indication: ATRIAL SEPTAL DEFECT

REACTIONS (3)
  - PULMONARY EMBOLISM [None]
  - PULMONARY HAEMORRHAGE [None]
  - RESPIRATORY DISTRESS [None]
